FAERS Safety Report 4466496-4 (Version None)
Quarter: 2004Q3

REPORT INFORMATION
  Report Type: 
  Country: None (occurrence: None)
  Receive Date: 20040930
  Receipt Date: 20040915
  Transmission Date: 20050211
  Serious: Yes (Hospitalization)
  Sender: FDA-Public Use
  Company Number: DSA_70402_2004

PATIENT
  Age: 68 Year
  Sex: Female
  Weight: 50 kg

DRUGS (5)
  1. DARVOCET-N 100 [Suspect]
     Indication: OSTEOARTHRITIS
     Dosage: 100 MG Q6HR PO
     Route: 048
  2. DARVOCET-N 100 [Suspect]
     Indication: POST PROCEDURAL PAIN
     Dosage: 100 MG Q6HR PO
     Route: 048
  3. KEPPRA [Suspect]
     Indication: CONVULSION
     Dosage: 500 MG  BID PO
     Route: 048
     Dates: start: 20040527
  4. DILANTIN [Suspect]
  5. ASPIRIN [Concomitant]

REACTIONS (8)
  - CEREBRAL INFARCTION [None]
  - CEREBRAL ISCHAEMIA [None]
  - CONVULSION [None]
  - FEELING ABNORMAL [None]
  - GRAND MAL CONVULSION [None]
  - HALLUCINATIONS, MIXED [None]
  - MICROANGIOPATHY [None]
  - SEDATION [None]
